FAERS Safety Report 15732787 (Version 3)
Quarter: 2019Q2

REPORT INFORMATION
  Report Type: Spontaneous
  Country: US (occurrence: US)
  Receive Date: 20181217
  Receipt Date: 20190404
  Transmission Date: 20190711
  Serious: Yes (Death, Hospitalization, Other)
  Sender: FDA-Public Use
  Company Number: US-009507513-1812USA008077

PATIENT
  Sex: Female
  Weight: 105.67 kg

DRUGS (1)
  1. JANUVIA [Suspect]
     Active Substance: SITAGLIPTIN PHOSPHATE
     Indication: TYPE 2 DIABETES MELLITUS
     Dosage: 100 MILLIGRAM, QD
     Route: 048
     Dates: start: 20170310, end: 20171215

REACTIONS (18)
  - Pancreatic carcinoma metastatic [Fatal]
  - Anxiety [Unknown]
  - Renal tubular necrosis [Unknown]
  - Bile duct obstruction [Unknown]
  - Malnutrition [Unknown]
  - Hepatorenal syndrome [Unknown]
  - Hepatic neoplasm [Unknown]
  - Acute kidney injury [Unknown]
  - Sleep apnoea syndrome [Unknown]
  - Hypovolaemia [Unknown]
  - Depression [Unknown]
  - Supraventricular tachycardia [Unknown]
  - Gastrooesophageal reflux disease [Unknown]
  - Diabetes mellitus inadequate control [Unknown]
  - Hepatic failure [Fatal]
  - Pancreatitis acute [Unknown]
  - Encephalopathy [Unknown]
  - Supraventricular extrasystoles [Unknown]

NARRATIVE: CASE EVENT DATE: 2017
